FAERS Safety Report 11152223 (Version 1)
Quarter: 2015Q2

REPORT INFORMATION
  Report Type: Spontaneous
  Country: US (occurrence: None)
  Receive Date: 20150529
  Receipt Date: 20150529
  Transmission Date: 20150821
  Serious: No
  Sender: FDA-Public Use
  Company Number: None

PATIENT
  Age: 39 Year
  Sex: Male
  Weight: 90.72 kg

DRUGS (1)
  1. HONEST SUNSCREEN BROAD SPECTRUM SPF 30 [Suspect]
     Active Substance: ZINC OXIDE
     Indication: PROPHYLAXIS AGAINST SOLAR RADIATION
     Dates: start: 20150520, end: 20150527

REACTIONS (3)
  - Drug ineffective [None]
  - Sunburn [None]
  - Product quality issue [None]

NARRATIVE: CASE EVENT DATE: 20150526
